FAERS Safety Report 6568158-6 (Version None)
Quarter: 2010Q1

REPORT INFORMATION
  Report Type: 
  Country: None (occurrence: None)
  Receive Date: 20100203
  Receipt Date: 20100120
  Transmission Date: 20100710
  Serious: Yes (Hospitalization)
  Sender: FDA-Public Use
  Company Number: GB-MEDIMMUNE-MEDI-0010381

PATIENT
  Sex: Male

DRUGS (1)
  1. SYNAGIS [Suspect]
     Dates: start: 20091101, end: 20091127

REACTIONS (2)
  - RESPIRATORY SYNCYTIAL VIRUS INFECTION [None]
  - RESPIRATORY TRACT INFECTION [None]
